FAERS Safety Report 5612410-5 (Version None)
Quarter: 2008Q1

REPORT INFORMATION
  Report Type: 
  Country: None (occurrence: None)
  Receive Date: 20080204
  Receipt Date: 20080122
  Transmission Date: 20080703
  Serious: Yes (Hospitalization, Other)
  Sender: FDA-Public Use
  Company Number: US-MERCK-0706USA00457

PATIENT
  Age: 66 Year
  Sex: Female

DRUGS (2)
  1. FOSAMAX [Suspect]
     Indication: OSTEOPENIA
     Route: 048
     Dates: start: 20040101
  2. FOSAMAX [Suspect]
     Indication: OSTEOPOROSIS
     Route: 048
     Dates: start: 20040101

REACTIONS (12)
  - BACK PAIN [None]
  - BRONCHITIS BACTERIAL [None]
  - CYSTITIS NONINFECTIVE [None]
  - DEHYDRATION [None]
  - HYPERTENSION [None]
  - NAUSEA [None]
  - PNEUMONIA [None]
  - RESORPTION BONE INCREASED [None]
  - TEMPOROMANDIBULAR JOINT SYNDROME [None]
  - TOOTH LOSS [None]
  - UPPER RESPIRATORY TRACT INFECTION [None]
  - VOMITING [None]
